FAERS Safety Report 9726074 (Version 2)
Quarter: 2014Q1

REPORT INFORMATION
  Report Type: Spontaneous
  Country: CA (occurrence: CA)
  Receive Date: 20131203
  Receipt Date: 20140109
  Transmission Date: 20141002
  Serious: Yes (Other)
  Sender: FDA-Public Use
  Company Number: CA-SA-2013SA121211

PATIENT
  Age: 59 Year
  Sex: Female
  Weight: 71 kg

DRUGS (5)
  1. ELOXATIN [Suspect]
     Indication: COLON CANCER
     Dosage: FREQUENCY- 1 EVERY 2 WEEKS
     Route: 042
     Dates: start: 20130219, end: 20130618
  2. CALCIUM/MAGNESIUM [Concomitant]
     Dosage: 250 MLS OVER 15 MINUTES
  3. DEXAMETHASONE [Concomitant]
     Route: 048
  4. ONDANSETRON [Concomitant]
     Route: 048
  5. LEUCOVORIN [Concomitant]

REACTIONS (9)
  - Diplopia [Recovered/Resolved]
  - Erythema [Recovered/Resolved]
  - Speech disorder [Recovered/Resolved]
  - Blood pressure decreased [Recovered/Resolved]
  - Hypoaesthesia [Recovered/Resolved]
  - Malaise [Recovered/Resolved]
  - Paraesthesia [Recovered/Resolved]
  - Vomiting [Recovered/Resolved]
  - Nausea [Recovered/Resolved]
